FAERS Safety Report 8847791 (Version 1)
Quarter: 2012Q4

REPORT INFORMATION
  Report Type: 
  Country: AU (occurrence: AU)
  Receive Date: 20121018
  Receipt Date: 20121018
  Transmission Date: 20130627
  Serious: Yes (Other)
  Sender: FDA-Public Use
  Company Number: AU-SANOFI-AVENTIS-2012SA073817

PATIENT
  Age: 0 Day
  Sex: Male

DRUGS (2)
  1. CLEXANE [Suspect]
     Indication: CLOTTING DISORDER
     Route: 064
  2. THYROXIN [Concomitant]
     Route: 064

REACTIONS (2)
  - Deafness [Unknown]
  - Exposure during pregnancy [Unknown]
